FAERS Safety Report 15884944 (Version 1)
Quarter: 2019Q1

REPORT INFORMATION
  Report Type: Spontaneous
  Country: US (occurrence: US)
  Receive Date: 20190129
  Receipt Date: 20190129
  Transmission Date: 20190417
  Serious: No
  Sender: FDA-Public Use
  Company Number: US-BAYER-2019-021050

PATIENT
  Age: 81 Year
  Sex: Female
  Weight: 70 kg

DRUGS (3)
  1. INSULIN [Concomitant]
     Active Substance: INSULIN NOS
  2. MIRALAX [Suspect]
     Active Substance: POLYETHYLENE GLYCOL 3350
     Indication: GASTROINTESTINAL DISORDER
     Dosage: UNK
     Route: 048
     Dates: start: 20190125, end: 20190128
  3. EX-LAX [SENNA ALEXANDRINA] [Concomitant]
     Dosage: UNK

REACTIONS (3)
  - Drug ineffective [Unknown]
  - Discomfort [Unknown]
  - Feeling abnormal [Unknown]

NARRATIVE: CASE EVENT DATE: 20190127
